FAERS Safety Report 19375076 (Version 1)
Quarter: 2021Q2

REPORT INFORMATION
  Report Type: Spontaneous
  Country: CH (occurrence: IN)
  Receive Date: 20210604
  Receipt Date: 20210604
  Transmission Date: 20210717
  Serious: Yes (Other)
  Sender: FDA-Public Use
  Company Number: IN-ASTELLAS-2021US020192

PATIENT
  Age: 73 Year
  Sex: Female

DRUGS (5)
  1. ISAVUCONAZOLE [Suspect]
     Active Substance: ISAVUCONAZOLE
     Indication: PRODUCT USED FOR UNKNOWN INDICATION
     Dosage: 200 MG, THRICE DAILY (SIX DOSES)
     Route: 042
  2. ISAVUCONAZOLE [Suspect]
     Active Substance: ISAVUCONAZOLE
     Indication: PRODUCT USED FOR UNKNOWN INDICATION
     Dosage: 200 MG, THRICE DAILY (600 MG)
     Route: 048
     Dates: start: 20210407
  3. AMPHOTERICIN B, LIPOSOME [Suspect]
     Active Substance: AMPHOTERICIN B
     Indication: PRODUCT USED FOR UNKNOWN INDICATION
     Dosage: 250 MG IN 500 CC 5% OVER 12 HOURS AT 400 PER HOUR
     Route: 065
     Dates: start: 20210409
  4. LINEZOLID. [Suspect]
     Active Substance: LINEZOLID
     Indication: PRODUCT USED FOR UNKNOWN INDICATION
     Dosage: 600 MG, TWICE DAILY (1200 MG)
     Route: 065
  5. PIPERACILLIN AND TAZOBACTAM [Suspect]
     Active Substance: PIPERACILLIN SODIUM\TAZOBACTAM SODIUM
     Indication: PRODUCT USED FOR UNKNOWN INDICATION
     Route: 042

REACTIONS (8)
  - Escherichia infection [Unknown]
  - Cerebral atrophy [Unknown]
  - Vomiting [Recovered/Resolved]
  - Optic atrophy [Unknown]
  - Nausea [Recovered/Resolved]
  - Chiasma syndrome [Unknown]
  - Acinetobacter test positive [Unknown]
  - Cerebellar atrophy [Unknown]
